FAERS Safety Report 10262230 (Version 2)
Quarter: 2014Q3

REPORT INFORMATION
  Report Type: Spontaneous
  Country: BR (occurrence: BR)
  Receive Date: 20140626
  Receipt Date: 20140710
  Transmission Date: 20150326
  Serious: No
  Sender: FDA-Public Use
  Company Number: BR-LUNDBECK-DKLU1101179

PATIENT
  Age: 66 Year
  Sex: Male

DRUGS (8)
  1. RIVOTRIL [Suspect]
     Active Substance: CLONAZEPAM
     Indication: SEDATION
     Route: 048
  2. FRISIUM [Suspect]
     Active Substance: CLOBAZAM
     Indication: ANXIETY
     Route: 048
     Dates: start: 2013
  3. GABAPENTIN. [Suspect]
     Active Substance: GABAPENTIN
     Indication: ANXIETY
     Route: 048
     Dates: start: 2013
  4. DEPURA [Suspect]
     Active Substance: CHOLECALCIFEROL
     Indication: VITAMIN D DEFICIENCY
     Route: 048
     Dates: start: 20140526
  5. LOSARTAN [Suspect]
     Active Substance: LOSARTAN
     Indication: HYPERTENSION
     Route: 048
     Dates: start: 2012
  6. RIVOTRIL [Suspect]
     Active Substance: CLONAZEPAM
     Indication: ANXIETY
     Route: 048
  7. DIAMICRON [Suspect]
     Active Substance: GLICLAZIDE
     Indication: DIABETES MELLITUS
     Route: 048
     Dates: start: 201312
  8. LUVOX [Suspect]
     Active Substance: FLUVOXAMINE MALEATE
     Indication: DEPRESSION
     Route: 048
     Dates: start: 2013

REACTIONS (4)
  - Malaise [Recovered/Resolved]
  - Drug administration error [Recovered/Resolved]
  - Drug interaction [Recovered/Resolved]
  - Anxiety [Recovered/Resolved]

NARRATIVE: CASE EVENT DATE: 20140526
